FAERS Safety Report 11672008 (Version 1)
Quarter: 2015Q4

REPORT INFORMATION
  Report Type: Spontaneous
  Country: US (occurrence: US)
  Receive Date: 20151027
  Receipt Date: 20151027
  Transmission Date: 20160304
  Serious: No
  Sender: FDA-Public Use
  Company Number: US-ELI_LILLY_AND_COMPANY-US201002006637

PATIENT
  Sex: Female

DRUGS (9)
  1. FORTEO [Suspect]
     Active Substance: TERIPARATIDE
     Dosage: 20 UG, DAILY (1/D)
     Dates: end: 20100521
  2. EYE DROPS [Concomitant]
     Active Substance: TETRAHYDROZOLINE HYDROCHLORIDE
     Dosage: UNK, DAILY (1/D)
  3. CIPRO [Concomitant]
     Active Substance: CIPROFLOXACIN HYDROCHLORIDE
     Indication: SINUSITIS
  4. ALLERGY MEDICATION [Concomitant]
     Active Substance: DIPHENHYDRAMINE HYDROCHLORIDE
  5. ZESTRIL [Concomitant]
     Active Substance: LISINOPRIL
     Dosage: 20 MG, UNKNOWN
  6. ZYRTEC [Concomitant]
     Active Substance: CETIRIZINE HYDROCHLORIDE
  7. BABY ASPIRIN [Concomitant]
     Active Substance: ASPIRIN
  8. FORTEO [Suspect]
     Active Substance: TERIPARATIDE
     Indication: OSTEOPOROSIS
     Dosage: 20 UG, DAILY (1/D)
     Dates: start: 20091121
  9. DOXYCYCLINE. [Concomitant]
     Active Substance: DOXYCYCLINE
     Indication: SINUSITIS
     Dosage: UNK, UNKNOWN

REACTIONS (17)
  - Sinus headache [Recovered/Resolved]
  - Weight decreased [Recovered/Resolved]
  - Dizziness [Recovered/Resolved]
  - Nervousness [Recovered/Resolved]
  - Hypersensitivity [Recovered/Resolved]
  - Myalgia [Recovered/Resolved]
  - Feeling abnormal [Unknown]
  - Sinusitis [Recovered/Resolved]
  - Amnesia [Recovered/Resolved]
  - Lip swelling [Unknown]
  - Fatigue [Recovered/Resolved]
  - Basal cell carcinoma [Recovered/Resolved]
  - Malaise [Recovered/Resolved]
  - Injection site pain [Unknown]
  - Disturbance in attention [Recovered/Resolved]
  - Hypertension [Not Recovered/Not Resolved]
  - Vision blurred [Recovered/Resolved]
